FAERS Safety Report 21039935 (Version 1)
Quarter: 2022Q3

REPORT INFORMATION
  Report Type: Report from Study
  Country: CN (occurrence: CN)
  Receive Date: 20220704
  Receipt Date: 20220704
  Transmission Date: 20221027
  Serious: Yes (Death, Other)
  Sender: FDA-Public Use
  Company Number: CN-TEVA-2021-CN-1871741

PATIENT
  Age: 63 Year
  Sex: Male

DRUGS (8)
  1. BENDAMUSTINE [Suspect]
     Active Substance: BENDAMUSTINE
     Indication: Diffuse large B-cell lymphoma
     Dosage: A TOTAL OF 6 CYCLES ON DAYS 2 AND 3 OF CYCLE 1 AND DAYS 1 AND 2 OF CYCLES 2-6
     Route: 042
     Dates: start: 20200731
  2. RITUXIMAB [Suspect]
     Active Substance: RITUXIMAB
     Indication: Diffuse large B-cell lymphoma
     Dosage: TOTAL OF 6 CYCLES ON DAY 1 OF EACH CYCLE (375 MG/M2,1 IN 21 D)
     Route: 041
     Dates: start: 20200730
  3. POLATUZUMAB VEDOTIN [Suspect]
     Active Substance: POLATUZUMAB VEDOTIN
     Indication: Diffuse large B-cell lymphoma
     Dosage: TOTAL OF 6 CYCLES ON DAY 2 OF CYCLE 1 AND DAY 1 OF CYCLES 2-6 (1IN 21 D)
     Route: 042
     Dates: start: 20200731
  4. ENTECAVIR [Concomitant]
     Active Substance: ENTECAVIR
     Indication: Product used for unknown indication
     Dates: start: 20200731
  5. CITICOLINE [Concomitant]
     Active Substance: CITICOLINE
     Indication: Product used for unknown indication
     Dates: start: 20200929
  6. METHYLCOBALAMIN [Concomitant]
     Active Substance: METHYLCOBALAMIN
     Indication: Neuropathy peripheral
     Dates: start: 20200929
  7. BERBERINE [Concomitant]
     Active Substance: BERBERINE
     Indication: Diarrhoea
     Dates: start: 20200923
  8. SULFAMETHOXAZOLE [Concomitant]
     Active Substance: SULFAMETHOXAZOLE
     Indication: Product used for unknown indication
     Dates: end: 20200803

REACTIONS (3)
  - Septic shock [Fatal]
  - Pneumonia [Unknown]
  - Platelet count decreased [Unknown]

NARRATIVE: CASE EVENT DATE: 20201108
